FAERS Safety Report 11387734 (Version 2)
Quarter: 2015Q3

REPORT INFORMATION
  Report Type: Spontaneous
  Country: PE (occurrence: PE)
  Receive Date: 20150817
  Receipt Date: 20150925
  Transmission Date: 20151125
  Serious: Yes (Other)
  Sender: FDA-Public Use
  Company Number: PE-PFIZER INC-2015265687

PATIENT
  Age: 89 Year
  Sex: Female

DRUGS (2)
  1. XALATAN [Suspect]
     Active Substance: LATANOPROST
     Indication: GLAUCOMA
     Dosage: ONE DROP ON EACH EYE, 1X/DAY
     Route: 047
  2. DORZOPT [Concomitant]
     Indication: ANTIINFLAMMATORY THERAPY
     Dosage: 1 DROP ON EACH EYE, DAILY
     Route: 047
     Dates: start: 201508

REACTIONS (1)
  - Eye infection [Recovered/Resolved]

NARRATIVE: CASE EVENT DATE: 201508
